FAERS Safety Report 23378513 (Version 1)
Quarter: 2024Q1

REPORT INFORMATION
  Report Type: Report from Study
  Country: DO (occurrence: DO)
  Receive Date: 20240108
  Receipt Date: 20240108
  Transmission Date: 20240410
  Serious: Yes (Death, Hospitalization)
  Sender: FDA-Public Use
  Company Number: DO-Merck Healthcare KGaA-2023493637

PATIENT
  Age: 60 Year
  Sex: Female

DRUGS (1)
  1. CETUXIMAB [Suspect]
     Active Substance: CETUXIMAB
     Indication: Colon cancer
     Dosage: 400 MG/M2, WEEKLY (1/W)
     Route: 042
     Dates: start: 20230404

REACTIONS (4)
  - Death [Fatal]
  - Decreased appetite [Unknown]
  - Malaise [Unknown]
  - Off label use [Unknown]

NARRATIVE: CASE EVENT DATE: 20231124
